FAERS Safety Report 8550762 (Version 9)
Quarter: 2012Q4

REPORT INFORMATION
  Report Type: 
  Country: US (occurrence: US)
  Receive Date: 20120508
  Receipt Date: 20120829
  Transmission Date: 20130627
  Serious: Yes (Other)
  Sender: FDA-Public Use
  Company Number: US-BAYER-2012-044254

PATIENT
  Age: 67 Year
  Sex: Female

DRUGS (7)
  1. NEXAVAR [Suspect]
     Indication: HEPATIC NEOPLASM MALIGNANT NON-RESECTABLE
     Dosage: 200 mg, daily
     Route: 048
     Dates: start: 20120403, end: 201204
  2. NEXAVAR [Suspect]
     Indication: HEPATIC NEOPLASM MALIGNANT NON-RESECTABLE
     Dosage: 200 mg, BID
     Dates: start: 20120430, end: 20120515
  3. NEXAVAR [Suspect]
     Indication: HEPATIC NEOPLASM MALIGNANT NON-RESECTABLE
     Dosage: 400 mg, BID
     Dates: end: 20120515
  4. NEXAVAR [Suspect]
     Indication: HEPATIC NEOPLASM MALIGNANT NON-RESECTABLE
     Dosage: 200 mg, BID
     Route: 048
     Dates: start: 20120521, end: 20120522
  5. NEXAVAR [Suspect]
     Indication: HEPATIC NEOPLASM MALIGNANT NON-RESECTABLE
     Dosage: UNK
     Dates: start: 20120711, end: 20120808
  6. CARDIAC THERAPY [Concomitant]
  7. ANTIHYPERTENSIVES [Concomitant]

REACTIONS (23)
  - Cranial nerve disorder [Recovered/Resolved]
  - Nausea [None]
  - Oropharyngeal spasm [None]
  - Dizziness [None]
  - Hypertension [Recovering/Resolving]
  - Musculoskeletal discomfort [None]
  - Thyroid disorder [None]
  - Vulvovaginal rash [Recovering/Resolving]
  - Pain of skin [Not Recovered/Not Resolved]
  - Skin disorder [Recovering/Resolving]
  - Diarrhoea [Recovering/Resolving]
  - Rash [Not Recovered/Not Resolved]
  - Dyspepsia [Recovering/Resolving]
  - Herpes zoster [None]
  - Rash [Recovering/Resolving]
  - Alpha 1 foetoprotein increased [Recovering/Resolving]
  - Hepatic enzyme increased [Not Recovered/Not Resolved]
  - Adverse drug reaction [None]
  - Pyrexia [Not Recovered/Not Resolved]
  - Chills [Not Recovered/Not Resolved]
  - Faeces discoloured [Not Recovered/Not Resolved]
  - Tumour marker increased [Not Recovered/Not Resolved]
  - Scan lymph nodes [None]
